FAERS Safety Report 7742857-2 (Version None)
Quarter: 2011Q3

REPORT INFORMATION
  Report Type: 
  Country: None (occurrence: None)
  Receive Date: 20110907
  Receipt Date: 20110907
  Transmission Date: 20111222
  Serious: Yes (Hospitalization)
  Sender: FDA-Public Use
  Company Number: None

PATIENT
  Age: 32 Year
  Sex: Male
  Weight: 72.5755 kg

DRUGS (1)
  1. CLOZAPINE [Suspect]
     Indication: SCHIZOPHRENIA, PARANOID TYPE
     Dosage: 100MG 3X A DAY APRIL TO AUGUST 09

REACTIONS (3)
  - DISEASE RECURRENCE [None]
  - ACUTE PSYCHOSIS [None]
  - PRODUCT SUBSTITUTION ISSUE [None]
